FAERS Safety Report 17943722 (Version 3)
Quarter: 2020Q4

REPORT INFORMATION
  Report Type: Report from Study
  Country: None (occurrence: US)
  Receive Date: 20200625
  Receipt Date: 20201202
  Transmission Date: 20210113
  Serious: Yes (Other)
  Sender: FDA-Public Use
  Company Number: US-ABBVIE-20K-163-3456838-00

PATIENT
  Sex: Male

DRUGS (1)
  1. IMBRUVICA [Suspect]
     Active Substance: IBRUTINIB
     Indication: CHRONIC LYMPHOCYTIC LEUKAEMIA
     Route: 048
     Dates: start: 20190524

REACTIONS (2)
  - Loss of personal independence in daily activities [Unknown]
  - Arthralgia [Unknown]
